FAERS Safety Report 5308930-3 (Version None)
Quarter: 2007Q2

REPORT INFORMATION
  Report Type: 
  Country: None (occurrence: None)
  Receive Date: 20070426
  Receipt Date: 20070414
  Transmission Date: 20071010
  Serious: Yes (Other)
  Sender: FDA-Public Use
  Company Number: US-PFIZER INC-2007004806

PATIENT
  Sex: Male
  Weight: 90.7 kg

DRUGS (6)
  1. CHANTIX [Suspect]
     Indication: EX-SMOKER
  2. PEPCID COMPLETE [Concomitant]
  3. CLARITIN [Concomitant]
  4. ALBUTEROL [Concomitant]
  5. PROTONIX [Concomitant]
  6. ADVAIR DISKUS 100/50 [Concomitant]

REACTIONS (6)
  - ABDOMINAL DISTENSION [None]
  - DYSPNOEA [None]
  - GASTRIC DISORDER [None]
  - HYPOACUSIS [None]
  - VOCAL CORD INFLAMMATION [None]
  - WHEEZING [None]
